FAERS Safety Report 9799921 (Version 2)
Quarter: 2014Q1

REPORT INFORMATION
  Report Type: Spontaneous
  Country: US (occurrence: US)
  Receive Date: 20140106
  Receipt Date: 20140205
  Transmission Date: 20141002
  Serious: No
  Sender: FDA-Public Use
  Company Number: US-009507513-1401USA001446

PATIENT
  Age: 58 Year
  Sex: Female
  Weight: 86.17 kg

DRUGS (6)
  1. OXYTROL FOR WOMEN [Suspect]
     Indication: POLLAKIURIA
     Dosage: UNK, UNKNOWN
     Route: 062
     Dates: start: 201310
  2. OXYTROL FOR WOMEN [Suspect]
     Indication: URINARY INCONTINENCE
  3. KEPRA [Concomitant]
     Indication: EPILEPSY
     Dosage: 250 MG, UNKNOWN
  4. EFFEXOR [Concomitant]
     Indication: DEPRESSION
     Dosage: 200 MG, UNKNOWN
  5. EFFEXOR [Concomitant]
     Indication: ANXIETY
  6. IBUPROFEN [Concomitant]
     Indication: OSTEOARTHRITIS
     Dosage: 800 MG, UNKNOWN

REACTIONS (4)
  - Application site urticaria [Unknown]
  - Application site erythema [Unknown]
  - Application site warmth [Unknown]
  - Sleep disorder [Unknown]
